FAERS Safety Report 9910817 (Version 1)
Quarter: 2014Q1

REPORT INFORMATION
  Report Type: Spontaneous
  Country: US (occurrence: US)
  Receive Date: 20140219
  Receipt Date: 20140219
  Transmission Date: 20141002
  Serious: Yes (Hospitalization)
  Sender: FDA-Public Use
  Company Number: US-CUBIST PHARMACEUTICAL, INC.-2014CBST000260

PATIENT
  Sex: 0

DRUGS (2)
  1. CUBICIN [Suspect]
     Indication: CELLULITIS
     Dosage: UNK UNK, UNK
     Route: 042
  2. ANTIBIOTICS [Concomitant]
     Indication: CELLULITIS
     Dosage: UNK, UNK, UNK
     Route: 048

REACTIONS (3)
  - Cryoglobulinaemia [Unknown]
  - Glomerulonephritis membranoproliferative [Unknown]
  - Non-Hodgkin^s lymphoma [Unknown]
